FAERS Safety Report 4850003-8 (Version None)
Quarter: 2005Q4

REPORT INFORMATION
  Report Type: 
  Country: None (occurrence: None)
  Receive Date: 20051123
  Receipt Date: 20050111
  Transmission Date: 20060501
  Serious: Yes (Other)
  Sender: FDA-Public Use
  Company Number: 2004114203

PATIENT
  Age: 49 Year
  Sex: Male
  Weight: 80.2867 kg

DRUGS (4)
  1. LIPITOR [Suspect]
     Indication: HYPERLIPIDAEMIA
     Dosage: 10 MG (10 MG, 1 IN 1 D), ORAL
     Route: 048
     Dates: start: 20020204, end: 20040525
  2. RABEPRAZOLE SODIUM [Concomitant]
  3. BUDESONIDE [Concomitant]
  4. TRAZODONE(TRAZODONE) [Concomitant]

REACTIONS (3)
  - BLOOD CHOLESTEROL INCREASED [None]
  - BLOOD CREATINE PHOSPHOKINASE INCREASED [None]
  - LIVER FUNCTION TEST ABNORMAL [None]
